FAERS Safety Report 6263726-3 (Version None)
Quarter: 2009Q3

REPORT INFORMATION
  Report Type: 
  Country: None (occurrence: None)
  Receive Date: 20090710
  Receipt Date: 20090703
  Transmission Date: 20100115
  Serious: Yes (Other)
  Sender: FDA-Public Use
  Company Number: RU-AMGEN-UK350941

PATIENT
  Sex: Female

DRUGS (3)
  1. NEULASTIM [Suspect]
     Indication: OVARIAN CANCER
     Route: 065
     Dates: start: 20090101, end: 20090101
  2. GEMCITABINE [Concomitant]
     Dates: start: 20090101, end: 20090101
  3. CARBOPLATIN [Concomitant]
     Dates: start: 20090101, end: 20090101

REACTIONS (2)
  - DRUG INEFFECTIVE [None]
  - NEUTROPENIA [None]
